FAERS Safety Report 24765260 (Version 1)
Quarter: 2024Q4

REPORT INFORMATION
  Report Type: Spontaneous
  Country: US (occurrence: US)
  Receive Date: 20241223
  Receipt Date: 20241223
  Transmission Date: 20250115
  Serious: No
  Sender: BAYER HEALTHCARE LLC
  Company Number: US-BAYER-2024A180174

PATIENT

DRUGS (1)
  1. MIRALAX [Suspect]
     Active Substance: POLYETHYLENE GLYCOL 3350
     Indication: Colonoscopy
     Dosage: MY DOCTOR TOLD ME TO TAKE 8.3 OUNCES OF MIRALAX WITH GATORADE FOR A CLEANSING FOR A COLONOSCOPY.
     Route: 048

REACTIONS (1)
  - Product prescribing issue [Unknown]
